FAERS Safety Report 17631421 (Version 2)
Quarter: 2020Q2

REPORT INFORMATION
  Report Type: Report from Study
  Country: US (occurrence: US)
  Receive Date: 20200406
  Receipt Date: 20200409
  Transmission Date: 20200713
  Serious: Yes (Other)
  Sender: FDA-Public Use
  Company Number: US-PFIZER INC-2020139420

PATIENT
  Age: 33 Year
  Sex: Male
  Weight: 81 kg

DRUGS (1)
  1. TESTOSTERONE CIPIONATE [Suspect]
     Active Substance: TESTOSTERONE
     Indication: MUSCLE BUILDING THERAPY
     Dosage: UNK

REACTIONS (3)
  - Acute kidney injury [Unknown]
  - Drug abuse [Recovered/Resolved]
  - Focal segmental glomerulosclerosis [Unknown]
